FAERS Safety Report 20834774 (Version 1)
Quarter: 2022Q2

REPORT INFORMATION
  Report Type: Spontaneous
  Country: US (occurrence: US)
  Receive Date: 20220516
  Receipt Date: 20220516
  Transmission Date: 20220721
  Serious: No
  Sender: FDA-Public Use
  Company Number: US-009507513-2012USA009299

PATIENT
  Sex: Female

DRUGS (7)
  1. FOLLISTIM AQ [Suspect]
     Active Substance: FOLLITROPIN
     Indication: Ovarian dysfunction
     Dosage: STRENGTH: 900 IU/1.08 ML, DOSE: 300 UNITS, DAILY
     Route: 058
     Dates: start: 20190711
  2. FOLLISTIM AQ [Suspect]
     Active Substance: FOLLITROPIN
     Indication: Infertility female
  3. LABETALOL [Concomitant]
     Active Substance: LABETALOL\LABETALOL HYDROCHLORIDE
     Dosage: UNK
     Route: 048
  4. OVIDREL [Concomitant]
     Active Substance: CHORIOGONADOTROPIN ALFA
     Dosage: UNK
  5. VITAMIN B12 [Concomitant]
     Active Substance: CYANOCOBALAMIN
     Dosage: UNK
     Route: 048
  6. VITAMIN D3 [Concomitant]
     Active Substance: CHOLECALCIFEROL
     Dosage: STRENGTH: 400 UNIT, UNK
     Route: 048
  7. FIBER [Concomitant]
     Active Substance: PSYLLIUM HUSK
     Dosage: COMPLETE
     Route: 048

REACTIONS (3)
  - Dizziness [Unknown]
  - Hot flush [Unknown]
  - Headache [Unknown]
